FAERS Safety Report 7884417-9 (Version None)
Quarter: 2011Q4

REPORT INFORMATION
  Report Type: 
  Country: None (occurrence: None)
  Receive Date: 20111102
  Receipt Date: 20110829
  Transmission Date: 20120403
  Serious: No
  Sender: FDA-Public Use
  Company Number: US-ASTRAZENECA-2011SE51831

PATIENT
  Age: 74 Year
  Sex: Male

DRUGS (6)
  1. LEXAPRO [Concomitant]
  2. FLOMAX [Concomitant]
  3. LOTENSIN [Concomitant]
  4. NORVASC [Concomitant]
  5. VANDETANIB [Suspect]
     Indication: THYROID CANCER
     Route: 048
  6. SYNTHROID [Concomitant]

REACTIONS (3)
  - EXTRAOCULAR MUSCLE PARESIS [None]
  - DIZZINESS [None]
  - DERMATITIS ACNEIFORM [None]
